FAERS Safety Report 17672730 (Version 4)
Quarter: 2020Q2

REPORT INFORMATION
  Report Type: Spontaneous
  Country: US (occurrence: US)
  Receive Date: 20200415
  Receipt Date: 20200618
  Transmission Date: 20200713
  Serious: No
  Sender: FDA-Public Use
  Company Number: US-SHIRE-US202013489

PATIENT
  Age: 83 Year
  Sex: Female

DRUGS (4)
  1. VPRIV [Suspect]
     Active Substance: VELAGLUCERASE ALFA
     Dosage: 2800 INTERNATIONAL UNIT, 1X/2WKS
     Route: 042
     Dates: start: 20100423
  2. VPRIV [Suspect]
     Active Substance: VELAGLUCERASE ALFA
     Indication: GAUCHER^S DISEASE
     Dosage: 2800 INTERNATIONAL UNIT, 1X A MONTH
     Route: 065
     Dates: start: 2014
  3. VPRIV [Suspect]
     Active Substance: VELAGLUCERASE ALFA
     Dosage: (29.47 UNIT DOSE), 2X A WEEK
     Route: 042
     Dates: start: 20100423
  4. VPRIV [Suspect]
     Active Substance: VELAGLUCERASE ALFA
     Dosage: 5600, 1X A MONTH
     Route: 042
     Dates: start: 20100423

REACTIONS (6)
  - Product dose omission [Not Recovered/Not Resolved]
  - Off label use [Recovering/Resolving]
  - Fatigue [Not Recovered/Not Resolved]
  - Musculoskeletal pain [Not Recovered/Not Resolved]
  - Inappropriate schedule of product administration [Recovering/Resolving]
  - Bone pain [Not Recovered/Not Resolved]

NARRATIVE: CASE EVENT DATE: 20200306
